FAERS Safety Report 8886278 (Version 1)
Quarter: 2012Q4

REPORT INFORMATION
  Report Type: 
  Country: AU (occurrence: AU)
  Receive Date: 20121105
  Receipt Date: 20121105
  Transmission Date: 20130627
  Serious: Yes (Other)
  Sender: FDA-Public Use
  Company Number: PHHY2012AU099868

PATIENT
  Age: 16 Year
  Sex: Male

DRUGS (2)
  1. CLOZARIL (CLOZAPINE) [Suspect]
     Indication: SCHIZOPHRENIA
     Dosage: 350 mg, in night
     Route: 048
     Dates: start: 20120912
  2. CLOZARIL (CLOZAPINE) [Suspect]
     Dosage: 350 mg in the morning as well as in the night
     Route: 048
     Dates: start: 20121030

REACTIONS (3)
  - Accidental exposure to product [Unknown]
  - Vomiting [Unknown]
  - Somnolence [Unknown]
